FAERS Safety Report 15970541 (Version 1)
Quarter: 2019Q1

REPORT INFORMATION
  Report Type: Report from Study
  Country: US (occurrence: US)
  Receive Date: 20190215
  Receipt Date: 20190215
  Transmission Date: 20190418
  Serious: No
  Sender: FDA-Public Use
  Company Number: US-AMAG PHARMACEUTICALS, INC.-AMAG201803236

PATIENT
  Age: 23 Year
  Sex: Female

DRUGS (2)
  1. MAKENA [Suspect]
     Active Substance: HYDROXYPROGESTERONE CAPROATE
     Indication: PREMATURE DELIVERY
     Dosage: 250 MG/ML, WEEKLY
     Route: 058
     Dates: start: 20180619, end: 20180619
  2. MAKENA [Suspect]
     Active Substance: HYDROXYPROGESTERONE CAPROATE
     Dosage: 250 MG/ML, WEEKLY
     Route: 030
     Dates: start: 201806

REACTIONS (6)
  - Injection site paraesthesia [Recovered/Resolved]
  - Malaise [Unknown]
  - Injection site pain [Recovered/Resolved]
  - Back pain [Recovered/Resolved]
  - Inappropriate schedule of product administration [Unknown]
  - Dizziness [Unknown]

NARRATIVE: CASE EVENT DATE: 20180619
